FAERS Safety Report 8009254-6 (Version None)
Quarter: 2011Q4

REPORT INFORMATION
  Report Type: 
  Country: None (occurrence: None)
  Receive Date: 20111227
  Receipt Date: 20111213
  Transmission Date: 20120403
  Serious: Yes (Other)
  Sender: FDA-Public Use
  Company Number: JP-PFIZER INC-2011309618

PATIENT
  Age: 78 Year
  Sex: Male

DRUGS (10)
  1. REZALTAS [Concomitant]
  2. AMARYL [Concomitant]
  3. CARVEDILOL [Concomitant]
  4. PROGRAF [Suspect]
     Indication: RHEUMATOID ARTHRITIS
     Dosage: 1 MG, 1X/DAY
     Route: 048
  5. CELECOXIB [Suspect]
     Route: 048
  6. ALOGLIPTIN BENZOATE [Concomitant]
  7. ZOLPIDEM [Concomitant]
     Dosage: 10 MG, UNK
  8. LANIRAPID [Concomitant]
  9. MUCOSTA [Concomitant]
  10. ALPRAZOLAM [Concomitant]

REACTIONS (1)
  - GLYCOSYLATED HAEMOGLOBIN INCREASED [None]
